FAERS Safety Report 9199966 (Version 1)
Quarter: 2013Q1

REPORT INFORMATION
  Report Type: Spontaneous
  Country: US (occurrence: US)
  Receive Date: 20130329
  Receipt Date: 20130329
  Transmission Date: 20140127
  Serious: Yes (Other)
  Sender: FDA-Public Use
  Company Number: US-PFIZER INC-2013096035

PATIENT
  Sex: Male
  Weight: 2.13 kg

DRUGS (12)
  1. CYTARABINE [Suspect]
     Indication: ACUTE MYELOID LEUKAEMIA
     Dosage: 90 MG/M2, 2X/DAY, EVERY 12 HOURS X 7 DAYS
     Route: 064
  2. PREDNISONE [Suspect]
     Indication: ACUTE MYELOID LEUKAEMIA
     Dosage: 40 MG/M2, 1X/DAY FOR 7 DAYS
     Route: 064
  3. CARBENICILLIN INDANYL SODIUM [Suspect]
     Indication: SEPSIS
     Dosage: UNK
     Route: 064
  4. CEFAZOLIN [Suspect]
     Indication: SEPSIS
     Dosage: UNK
     Route: 064
  5. SULFAMETHOXAZOLE [Suspect]
     Indication: LUNG INFILTRATION
     Dosage: UNK
     Route: 064
  6. SULFAMETHOXAZOLE [Suspect]
     Indication: RESPIRATORY FAILURE
  7. THIOGUANINE [Suspect]
     Indication: ACUTE MYELOID LEUKAEMIA
     Dosage: 90 MG/M2, 2X/DAY, EVERY 12 HOURS X 7 DAYS
     Route: 064
  8. VINCRISTINE [Suspect]
     Indication: ACUTE MYELOID LEUKAEMIA
     Dosage: 1.0 MG/M2 ON DAYS 1 AND 7
     Route: 064
  9. DAUNORUBICIN [Suspect]
     Indication: ACUTE MYELOID LEUKAEMIA
     Dosage: 70 MG/M2, 1X/DAY FOR 3 DAYS
     Route: 064
  10. AMPHOTERICIN B [Suspect]
     Indication: LUNG INFILTRATION
     Dosage: UNK
     Route: 064
  11. AMPHOTERICIN B [Suspect]
     Indication: RESPIRATORY FAILURE
  12. GENTAMICIN [Suspect]
     Indication: SEPSIS
     Dosage: UNK
     Route: 064

REACTIONS (9)
  - Maternal exposure during pregnancy [Unknown]
  - Premature baby [Unknown]
  - Hyponatraemia [None]
  - Hypocalcaemia [None]
  - Hypoglycaemia [None]
  - Anaemia [None]
  - Dermatitis diaper [None]
  - Otitis media [None]
  - Growth retardation [None]
